FAERS Safety Report 6249525-7 (Version None)
Quarter: 2009Q2

REPORT INFORMATION
  Report Type: 
  Country: None (occurrence: None)
  Receive Date: 20090625
  Receipt Date: 20090625
  Transmission Date: 20091009
  Serious: Yes (Other)
  Sender: FDA-Public Use
  Company Number: None

PATIENT
  Sex: Female
  Weight: 86.1834 kg

DRUGS (1)
  1. NORCO [Suspect]
     Indication: PAIN
     Dates: start: 20081101, end: 20081102

REACTIONS (2)
  - POST PROCEDURAL COMPLICATION [None]
  - UNEVALUABLE EVENT [None]
